FAERS Safety Report 5146165-8 (Version None)
Quarter: 2006Q4

REPORT INFORMATION
  Report Type: 
  Country: None (occurrence: None)
  Receive Date: 20061106
  Receipt Date: 20061106
  Transmission Date: 20070319
  Serious: Yes (Hospitalization)
  Sender: FDA-Public Use
  Company Number: None

PATIENT
  Sex: Male
  Weight: 100 kg

DRUGS (11)
  1. BETA INTERFERON [Suspect]
     Indication: MALIGNANT MELANOMA
     Dosage: 24 MU   DAILY   SQ
     Route: 058
     Dates: start: 20060707, end: 20060817
  2. NAPROSYN [Concomitant]
  3. MS CONTIN [Concomitant]
  4. REBIF [Concomitant]
  5. VICODIN [Concomitant]
  6. XANAX [Concomitant]
  7. RETIN-A [Concomitant]
  8. RESTORIL [Concomitant]
  9. FLOMAX [Concomitant]
  10. XANAX [Concomitant]
  11. SUDAFED SINUS [Concomitant]

REACTIONS (3)
  - DISEASE PROGRESSION [None]
  - MUSCULAR WEAKNESS [None]
  - SPINAL CORD COMPRESSION [None]
